FAERS Safety Report 6714260-5 (Version None)
Quarter: 2010Q2

REPORT INFORMATION
  Report Type: 
  Country: None (occurrence: None)
  Receive Date: 20100506
  Receipt Date: 20090622
  Transmission Date: 20101027
  Serious: No
  Sender: FDA-Public Use
  Company Number: US-BAUSCH-2009BL003100

PATIENT
  Age: 45 Year
  Sex: Female
  Weight: 68 kg

DRUGS (2)
  1. LOTEMAX [Suspect]
     Indication: OCULAR HYPERAEMIA
     Route: 047
     Dates: start: 20090621, end: 20090622
  2. LOTEMAX [Suspect]
     Indication: EYE DISORDER
     Route: 047
     Dates: start: 20090621, end: 20090622

REACTIONS (1)
  - DRUG INEFFECTIVE [None]
